FAERS Safety Report 11223024 (Version 1)
Quarter: 2015Q2

REPORT INFORMATION
  Report Type: Other
  Country: GB (occurrence: GB)
  Receive Date: 20150626
  Receipt Date: 20150626
  Transmission Date: 20150821
  Serious: Yes (Other)
  Sender: FDA-Public Use
  Company Number: GB-MYLANLABS-2015M1020215

PATIENT

DRUGS (10)
  1. REMIFENTANIL [Concomitant]
     Active Substance: REMIFENTANIL
     Dosage: UNK
  2. GENTAMICIN. [Concomitant]
     Active Substance: GENTAMICIN
     Dosage: 160 MG, UNK
  3. IBUPROFEN. [Concomitant]
     Active Substance: IBUPROFEN
     Dosage: 400 MG, UNK
     Route: 048
  4. ANAESTHETIC [Concomitant]
     Active Substance: UNSPECIFIED INGREDIENT
     Indication: URETHRAL DILATATION
     Dosage: UNK
  5. OXYGEN. [Concomitant]
     Active Substance: OXYGEN
     Dosage: UNK
  6. DESFLURANE. [Concomitant]
     Active Substance: DESFLURANE
     Dosage: UNK
  7. FENTANYL. [Concomitant]
     Active Substance: FENTANYL
     Dosage: 75 ?G, UNK
  8. PARACETAMOL [Concomitant]
     Active Substance: ACETAMINOPHEN
     Dosage: 1 G, UNK
     Route: 048
  9. PROPOFOL. [Concomitant]
     Active Substance: PROPOFOL
     Dosage: 180 MG, UNK
  10. ONDANSETRON [Suspect]
     Active Substance: ONDANSETRON
     Indication: PROPHYLAXIS OF NAUSEA AND VOMITING
     Dosage: 4 MG, UNK
     Route: 042

REACTIONS (4)
  - Confusional state [Recovered/Resolved]
  - Dystonia [Recovered/Resolved]
  - Extrapyramidal disorder [Recovered/Resolved]
  - Unresponsive to stimuli [Recovered/Resolved]

NARRATIVE: CASE EVENT DATE: 20150602
